FAERS Safety Report 9772746 (Version 1)
Quarter: 2013Q4

REPORT INFORMATION
  Report Type: Spontaneous
  Country: US (occurrence: US)
  Receive Date: 20131219
  Receipt Date: 20131219
  Transmission Date: 20140711
  Serious: No
  Sender: FDA-Public Use
  Company Number: US-PFIZER INC-2013361493

PATIENT
  Age: 58 Year
  Sex: Female

DRUGS (2)
  1. DILANTIN [Suspect]
     Dosage: 330 MG (BY TAKING 3 CAPSULES OF 100MG AND 1 CAPSULE OF 30MG), 1X/DAY
     Route: 048
  2. PULMICORT FLEXHALER [Concomitant]
     Dosage: UNK

REACTIONS (1)
  - Accident [Unknown]
